FAERS Safety Report 7327620-9 (Version None)
Quarter: 2011Q1

REPORT INFORMATION
  Report Type: 
  Country: None (occurrence: None)
  Receive Date: 20110303
  Receipt Date: 20110223
  Transmission Date: 20110831
  Serious: No
  Sender: FDA-Public Use
  Company Number: US-BIOGENIDEC-2011BI007480

PATIENT
  Age: 63 Year
  Sex: Male

DRUGS (5)
  1. AVONEX [Suspect]
     Indication: MULTIPLE SCLEROSIS
     Route: 030
     Dates: start: 20090202
  2. NEURONTIN [Concomitant]
     Indication: MULTIPLE SCLEROSIS
  3. BACLOFEN [Concomitant]
     Indication: MULTIPLE SCLEROSIS
  4. AVONEX [Suspect]
     Route: 030
     Dates: start: 20060401, end: 20070913
  5. SOMA [Concomitant]
     Indication: MULTIPLE SCLEROSIS

REACTIONS (3)
  - HYPERTENSION [None]
  - ASTHENIA [None]
  - FATIGUE [None]
